FAERS Safety Report 4394204-4 (Version None)
Quarter: 2004Q3

REPORT INFORMATION
  Report Type: 
  Country: None (occurrence: None)
  Receive Date: 20040706
  Receipt Date: 20040622
  Transmission Date: 20050211
  Serious: No
  Sender: FDA-Public Use
  Company Number: 04P-163-0264588-00

PATIENT
  Age: 37 Year
  Sex: Female

DRUGS (8)
  1. HUMIRA [Suspect]
     Indication: RHEUMATOID ARTHRITIS
     Dosage: 40 MG, 1 IN 2WK, SUBCUTANJEOUS
     Route: 058
     Dates: start: 20040301, end: 20040501
  2. HYDROXYCHLOROQUINE PHOSPHATE [Concomitant]
  3. GABAPENTIN [Concomitant]
  4. DOLABID [Concomitant]
  5. PROPRANOLOL HYDROCHLORIDE [Concomitant]
  6. CLONAZEPAM [Concomitant]
  7. BUSPIRONE HCL [Concomitant]
  8. METHOTREXATE SODIUM [Concomitant]

REACTIONS (2)
  - OVARIAN MASS [None]
  - UPPER RESPIRATORY TRACT INFECTION [None]
